FAERS Safety Report 7535839-7 (Version None)
Quarter: 2011Q2

REPORT INFORMATION
  Report Type: 
  Country: None (occurrence: None)
  Receive Date: 20110524
  Receipt Date: 20110224
  Transmission Date: 20111010
  Serious: Yes (Hospitalization)
  Sender: FDA-Public Use
  Company Number: 021730

PATIENT
  Sex: Male
  Weight: 71.5 kg

DRUGS (3)
  1. CIMZIA [Suspect]
  2. ASACOL [Concomitant]
  3. CIMZIA [Suspect]
     Indication: CROHN'S DISEASE
     Dosage: (400 MG 1X/28 DAYS SUBCUTANEOUS) ; (400 MG 1X/28 DAYS SUBCUTANEOUS)
     Route: 058
     Dates: start: 20090325

REACTIONS (5)
  - PANCREATITIS [None]
  - URINARY TRACT INFECTION [None]
  - FREQUENT BOWEL MOVEMENTS [None]
  - ABDOMINAL PAIN [None]
  - INFLUENZA LIKE ILLNESS [None]
